FAERS Safety Report 17233424 (Version 1)
Quarter: 2020Q1

REPORT INFORMATION
  Report Type: Spontaneous
  Country: GB (occurrence: GB)
  Receive Date: 20200104
  Receipt Date: 20200104
  Transmission Date: 20200409
  Serious: Yes (Life-Threatening, Hospitalization, Other)
  Sender: FDA-Public Use
  Company Number: GB-TEVA-2019-GB-1161482

PATIENT
  Age: 81 Year
  Sex: Male

DRUGS (9)
  1. BISOPROLOL [Concomitant]
     Active Substance: BISOPROLOL
  2. SERTRALINE [Concomitant]
     Active Substance: SERTRALINE HYDROCHLORIDE
  3. FINASTERIDE. [Concomitant]
     Active Substance: FINASTERIDE
  4. AMIODARONE [Suspect]
     Active Substance: AMIODARONE
     Indication: VENTRICULAR TACHYCARDIA
     Dosage: 200 MG
     Route: 048
     Dates: start: 201705, end: 201912
  5. MEBEVERINE [Concomitant]
     Active Substance: MEBEVERINE
  6. IRBESARTAN. [Concomitant]
     Active Substance: IRBESARTAN
  7. FUROSEMIDE. [Concomitant]
     Active Substance: FUROSEMIDE
  8. RIVAROXABAN [Concomitant]
     Active Substance: RIVAROXABAN
  9. EPLERENONE. [Concomitant]
     Active Substance: EPLERENONE

REACTIONS (2)
  - Liver function test abnormal [Not Recovered/Not Resolved]
  - Jaundice [Not Recovered/Not Resolved]

NARRATIVE: CASE EVENT DATE: 20191128
